FAERS Safety Report 10020915 (Version 2)
Quarter: 2014Q2

REPORT INFORMATION
  Report Type: Spontaneous
  Country: US (occurrence: US)
  Receive Date: 20140319
  Receipt Date: 20140406
  Transmission Date: 20141212
  Serious: No
  Sender: FDA-Public Use
  Company Number: US-009507513-1403USA001684

PATIENT
  Sex: Female
  Weight: 54.42 kg

DRUGS (8)
  1. OXYTROL FOR WOMEN [Suspect]
     Indication: HYPERTONIC BLADDER
     Dosage: 1 DF, Q4D
     Route: 062
     Dates: start: 20131230, end: 20140314
  2. SIMVASTATIN [Concomitant]
     Indication: HYPERTENSIVE HEART DISEASE
     Dosage: UNK, UNKNOWN
  3. PROPRANOLOL HYDROCHLORIDE [Concomitant]
     Indication: BLOOD CHOLESTEROL INCREASED
     Dosage: UNK, UNKNOWN
  4. NORTRIPTYLINE [Concomitant]
     Indication: DEPRESSION
     Dosage: UNK, UNKNOWN
  5. PREVACID [Concomitant]
     Indication: GASTROOESOPHAGEAL REFLUX DISEASE
     Dosage: UNK, UNKNOWN
  6. LORATADINE [Concomitant]
     Indication: HYPERSENSITIVITY
     Dosage: UNK, UNKNOWN
  7. FLUTICASONE [Concomitant]
     Indication: HYPERSENSITIVITY
     Dosage: UNK, UNKNOWN
  8. RESTASIS [Concomitant]
     Indication: DRY EYE
     Dosage: UNK, UNKNOWN

REACTIONS (3)
  - Drug effect decreased [Unknown]
  - Product adhesion issue [Unknown]
  - Product packaging issue [Unknown]
